FAERS Safety Report 12618944 (Version 1)
Quarter: 2016Q3

REPORT INFORMATION
  Report Type: Spontaneous
  Country: US (occurrence: US)
  Receive Date: 20160803
  Receipt Date: 20160803
  Transmission Date: 20161109
  Serious: Yes (Disabling, Other)
  Sender: FDA-Public Use
  Company Number: PHEH2016US018867

PATIENT
  Age: 63 Year
  Sex: Female

DRUGS (1)
  1. AFINITOR [Suspect]
     Active Substance: EVEROLIMUS
     Indication: BREAST CANCER
     Dosage: 10 MG, QD
     Route: 048
     Dates: start: 20160101, end: 20160505

REACTIONS (8)
  - Pneumonitis [Recovering/Resolving]
  - Bronchial wall thickening [Unknown]
  - Cough [Unknown]
  - Dyspnoea exertional [Unknown]
  - Pyrexia [Unknown]
  - Decreased appetite [Unknown]
  - Pulmonary oedema [Unknown]
  - Weight decreased [Unknown]

NARRATIVE: CASE EVENT DATE: 20160405
